FAERS Safety Report 10238283 (Version 2)
Quarter: 2014Q3

REPORT INFORMATION
  Report Type: Spontaneous
  Country: US (occurrence: US)
  Receive Date: 20140616
  Receipt Date: 20140716
  Transmission Date: 20150326
  Serious: No
  Sender: FDA-Public Use
  Company Number: US-PFIZER INC-2014160923

PATIENT
  Age: 68 Year
  Sex: Female
  Weight: 61.22 kg

DRUGS (1)
  1. VFEND [Suspect]
     Active Substance: VORICONAZOLE
     Indication: FUNGAL INFECTION
     Dosage: 200 MG, 2X/DAY
     Dates: start: 2013, end: 201305

REACTIONS (2)
  - Abnormal dreams [Recovered/Resolved]
  - Visual brightness [Recovered/Resolved]

NARRATIVE: CASE EVENT DATE: 2013
